FAERS Safety Report 9412568 (Version 1)
Quarter: 2013Q2

REPORT INFORMATION
  Report Type: Spontaneous
  Country: US (occurrence: None)
  Receive Date: 20130627
  Receipt Date: 20130627
  Transmission Date: 20140414
  Serious: Yes (Other)
  Sender: FDA-Public Use
  Company Number: 2012P1052832

PATIENT
  Age: 55 Year
  Sex: Female

DRUGS (2)
  1. INFUMORPH [Suspect]
     Indication: POST LAMINECTOMY SYNDROME
     Dosage: 11.004 MG;QD ; INTH
  2. INFUMORPH [Suspect]
     Indication: PAIN
     Dosage: 11.004 MG;QD ; INTH

REACTIONS (5)
  - Device malfunction [None]
  - Drug withdrawal syndrome [None]
  - Pain [None]
  - Drug effect decreased [None]
  - Medical device complication [None]
